FAERS Safety Report 5823095-7 (Version None)
Quarter: 2008Q3

REPORT INFORMATION
  Report Type: 
  Country: None (occurrence: None)
  Receive Date: 20080725
  Receipt Date: 20070724
  Transmission Date: 20090109
  Serious: Yes (Other)
  Sender: FDA-Public Use
  Company Number: US-AMGEN-KDL230723

PATIENT
  Sex: Female
  Weight: 69 kg

DRUGS (9)
  1. PROCRIT [Suspect]
     Indication: ANAEMIA OF MALIGNANT DISEASE
     Route: 058
     Dates: start: 20070418, end: 20070613
  2. AVASTIN [Concomitant]
     Route: 065
     Dates: start: 20070404
  3. TAXOL [Concomitant]
     Route: 065
     Dates: start: 20070404
  4. CARBOPLATIN [Concomitant]
     Route: 065
     Dates: start: 20070404
  5. LEUCOVORIN CALCIUM [Concomitant]
     Route: 065
     Dates: start: 20070404
  6. FLUOROURACIL [Concomitant]
     Route: 065
     Dates: start: 20070404
  7. NEUPOGEN [Concomitant]
     Route: 065
     Dates: start: 20070517
  8. PERCOCET [Concomitant]
     Route: 065
     Dates: start: 20070328
  9. ATIVAN [Concomitant]
     Route: 065
     Dates: start: 20070404

REACTIONS (3)
  - DRUG INEFFECTIVE [None]
  - SKIN INFECTION [None]
  - THROMBOSIS [None]
